FAERS Safety Report 15209852 (Version 3)
Quarter: 2018Q3

REPORT INFORMATION
  Report Type: Report from Study
  Country: US (occurrence: US)
  Receive Date: 20180727
  Receipt Date: 20180914
  Transmission Date: 20181010
  Serious: Yes (Other)
  Sender: FDA-Public Use
  Company Number: US-ACTELION-A-NJ2018-172567

PATIENT
  Age: 60 Year
  Sex: Male
  Weight: 90.7 kg

DRUGS (1)
  1. OPSUMIT [Suspect]
     Active Substance: MACITENTAN
     Indication: PULMONARY ARTERIAL HYPERTENSION
     Dosage: 10 MG, QD
     Route: 048

REACTIONS (14)
  - Dyspnoea at rest [Unknown]
  - Dialysis [Unknown]
  - Loss of consciousness [Unknown]
  - Muscular weakness [Unknown]
  - Dizziness [Unknown]
  - Syncope [Not Recovered/Not Resolved]
  - Exercise tolerance decreased [Unknown]
  - Asthenia [Unknown]
  - Blood pressure decreased [Unknown]
  - Ascites [Unknown]
  - Chest pain [Unknown]
  - Nocturnal dyspnoea [Unknown]
  - Cough [Not Recovered/Not Resolved]
  - Dyspnoea exertional [Unknown]

NARRATIVE: CASE EVENT DATE: 2018
